FAERS Safety Report 22172683 (Version 2)
Quarter: 2023Q2

REPORT INFORMATION
  Report Type: Report from Study
  Country: US (occurrence: US)
  Receive Date: 20230404
  Receipt Date: 20230420
  Transmission Date: 20230722
  Serious: Yes (Hospitalization)
  Sender: FDA-Public Use
  Company Number: US-GBT-021444

PATIENT
  Age: 22 Year
  Sex: Female

DRUGS (7)
  1. OXBRYTA [Suspect]
     Active Substance: VOXELOTOR
     Indication: Sickle cell disease
     Dates: start: 20211218
  2. albuterol HFA 90 mcg/actuation inhaler [Concomitant]
     Indication: Dyspnoea
     Dosage: 4 PUFF
     Route: 055
     Dates: start: 20171206
  3. Alvesco 160 mcg/actuation inhaler [Concomitant]
     Indication: Product used for unknown indication
     Dosage: 2 PUFF
     Route: 055
     Dates: start: 20200707
  4. VITAMIN D3 [Concomitant]
     Active Substance: CHOLECALCIFEROL
     Indication: General physical health deterioration
     Dosage: DOSAGE: 4000 U
     Route: 048
     Dates: start: 20190107
  5. DROXIA [Concomitant]
     Active Substance: HYDROXYUREA
     Indication: Sickle cell disease
     Route: 048
     Dates: start: 20190307
  6. famotidine (PEPCID) tablet [Concomitant]
     Indication: Product used for unknown indication
     Route: 048
     Dates: start: 20211031
  7. ursodioL (ACTIGALL) 300 mg capsule [Concomitant]
     Indication: Sickle cell disease
     Route: 048
     Dates: start: 20211205

REACTIONS (1)
  - Sickle cell anaemia with crisis [Recovered/Resolved]

NARRATIVE: CASE EVENT DATE: 20230206
